FAERS Safety Report 9874788 (Version 2)
Quarter: 2014Q1

REPORT INFORMATION
  Report Type: Report from Study
  Country: US (occurrence: US)
  Receive Date: 20140206
  Receipt Date: 20140303
  Transmission Date: 20141002
  Serious: Yes (Hospitalization)
  Sender: FDA-Public Use
  Company Number: PHEH2014US002374

PATIENT
  Age: 64 Year
  Sex: Male

DRUGS (1)
  1. MYFORTIC [Suspect]
     Dosage: 720 MG, BID
     Route: 048

REACTIONS (3)
  - Cardiac disorder [Unknown]
  - Stress [Unknown]
  - Hypertension [Unknown]
